FAERS Safety Report 12917806 (Version 2)
Quarter: 2016Q4

REPORT INFORMATION
  Report Type: Spontaneous
  Country: US (occurrence: US)
  Receive Date: 20161107
  Receipt Date: 20161117
  Transmission Date: 20170207
  Serious: No
  Sender: FDA-Public Use
  Company Number: US-PFIZER INC-2016512750

PATIENT
  Sex: Female

DRUGS (1)
  1. XELJANZ [Suspect]
     Active Substance: TOFACITINIB CITRATE
     Indication: RHEUMATOID ARTHRITIS
     Dosage: 5 MG, TWICE DAILY
     Route: 048
     Dates: start: 20140513

REACTIONS (9)
  - Dyspnoea [Unknown]
  - Joint range of motion decreased [Unknown]
  - Arthralgia [Not Recovered/Not Resolved]
  - Bronchitis [Unknown]
  - Condition aggravated [Not Recovered/Not Resolved]
  - Tenderness [Unknown]
  - Fatigue [Unknown]
  - Musculoskeletal stiffness [Unknown]
  - Cough [Recovering/Resolving]
